FAERS Safety Report 4811381-9 (Version None)
Quarter: 2005Q4

REPORT INFORMATION
  Report Type: 
  Country: None (occurrence: None)
  Receive Date: 20051027
  Receipt Date: 20051018
  Transmission Date: 20060501
  Serious: Yes (Other)
  Sender: FDA-Public Use
  Company Number: 2005UW15694

PATIENT

DRUGS (3)
  1. CRESTOR [Suspect]
     Route: 048
  2. REQUIP [Suspect]
  3. SHARK LIVER OIL [Suspect]
     Route: 048

REACTIONS (1)
  - RENAL FAILURE [None]
